FAERS Safety Report 5719583-4 (Version None)
Quarter: 2008Q2

REPORT INFORMATION
  Report Type: 
  Country: None (occurrence: None)
  Receive Date: 20080428
  Receipt Date: 20080416
  Transmission Date: 20081010
  Serious: Yes (Other)
  Sender: FDA-Public Use
  Company Number: B0380485A

PATIENT
  Sex: Female

DRUGS (12)
  1. SEROXAT [Suspect]
     Indication: DEPRESSION
     Dates: start: 19980801
  2. DIAZEPAM [Concomitant]
     Dates: start: 20020813, end: 20030601
  3. VENLAFAXINE HCL [Concomitant]
     Dates: start: 20020813, end: 20020904
  4. SERTRALINE [Concomitant]
     Dates: start: 20020904
  5. PROPRANOLOL [Concomitant]
     Dates: start: 20020916
  6. CLOMIPRAMINE HCL [Concomitant]
     Dates: start: 20021001
  7. CHLORPROMAZINE [Concomitant]
     Dates: start: 20021112, end: 20030401
  8. MIRTAZAPINE [Concomitant]
     Dates: start: 20030101, end: 20030101
  9. HALOPERIDOL [Concomitant]
     Dates: start: 20030201
  10. ZOPICLONE [Concomitant]
     Dates: start: 20030226, end: 20030601
  11. RISPERIDONE [Concomitant]
     Dates: start: 20030401, end: 20030601
  12. TRAZODONE HCL [Concomitant]
     Dates: start: 20030601

REACTIONS (10)
  - ABDOMINAL PAIN [None]
  - DIARRHOEA [None]
  - DRUG WITHDRAWAL SYNDROME [None]
  - FEELING JITTERY [None]
  - INSOMNIA [None]
  - NAUSEA [None]
  - PALPITATIONS [None]
  - SELF-INJURIOUS IDEATION [None]
  - SUICIDAL IDEATION [None]
  - WEIGHT DECREASED [None]
